FAERS Safety Report 9258758 (Version 2)
Quarter: 2014Q1

REPORT INFORMATION
  Report Type: Report from Study
  Country: JP (occurrence: JP)
  Receive Date: 20130426
  Receipt Date: 20140219
  Transmission Date: 20141002
  Serious: Yes (Hospitalization)
  Sender: FDA-Public Use
  Company Number: JP-BRISTOL-MYERS SQUIBB COMPANY-18485706

PATIENT
  Age: 58 Year
  Sex: Male
  Weight: 82 kg

DRUGS (3)
  1. BYETTA [Suspect]
     Indication: TYPE 2 DIABETES MELLITUS
     Dosage: INTERRUPTED ON 07-DEC-2011 AND DOSE INCREASED TO 10MCG 2/D ON 08DEC11
     Route: 058
     Dates: start: 20110818, end: 20120106
  2. METGLUCO [Concomitant]
     Indication: DIABETES MELLITUS
     Dates: end: 20120106
  3. AMARYL [Concomitant]
     Indication: DIABETES MELLITUS

REACTIONS (2)
  - Cholecystitis [Recovered/Resolved]
  - Cholelithiasis [Recovered/Resolved]
